FAERS Safety Report 8542287-X (Version None)
Quarter: 2012Q3

REPORT INFORMATION
  Report Type: 
  Country: None (occurrence: None)
  Receive Date: 20120726
  Receipt Date: 20120723
  Transmission Date: 20120928
  Serious: No
  Sender: FDA-Public Use
  Company Number: US-PFIZER INC-2012178178

PATIENT
  Sex: Female
  Weight: 55.329 kg

DRUGS (11)
  1. CELEBREX [Suspect]
     Indication: ARTHRITIS
     Dosage: 200 MG, 1X/DAY
     Route: 048
  2. VITAMIN B-12 [Concomitant]
     Dosage: UNK, MONTHLY
  3. CYMBALTA [Concomitant]
     Dosage: UNK
  4. SYNTHROID [Concomitant]
     Dosage: UNK
  5. TOPAMAX [Concomitant]
     Dosage: UNK
  6. PROTONIX [Concomitant]
     Dosage: UNK
  7. SUCRALFATE [Concomitant]
     Dosage: UNK
  8. FLEXERIL [Concomitant]
     Dosage: UNK
  9. SULFASALAZINE [Concomitant]
     Dosage: UNK
  10. NORTRIPTYLINE [Concomitant]
     Dosage: UNK
  11. ZOLOFT [Concomitant]
     Dosage: UNK

REACTIONS (3)
  - ACTIVITIES OF DAILY LIVING IMPAIRED [None]
  - MUSCULOSKELETAL DISORDER [None]
  - BACK DISORDER [None]
